FAERS Safety Report 4313956-2 (Version None)
Quarter: 2004Q1

REPORT INFORMATION
  Report Type: 
  Country: None (occurrence: None)
  Receive Date: 20040305
  Receipt Date: 20040223
  Transmission Date: 20041129
  Serious: Yes (Other)
  Sender: FDA-Public Use
  Company Number: 2004001148

PATIENT
  Age: 62 Year
  Sex: Female
  Weight: 67.6 kg

DRUGS (8)
  1. VFEND [Suspect]
     Indication: LOWER RESPIRATORY TRACT INFECTION
     Dosage: 400 MG (BID), ORAL
     Route: 048
     Dates: start: 20031219, end: 20040112
  2. BACTRIM [Suspect]
     Indication: LOWER RESPIRATORY TRACT INFECTION
     Dosage: 9600 MG (QID), ORAL
     Route: 048
     Dates: start: 20031219, end: 20031231
  3. CYCLIZINE   (CYCLIZINE) [Concomitant]
  4. LANSOPRAZOLE [Concomitant]
  5. ATENOLOL [Concomitant]
  6. METOCLOPRAMIDE [Concomitant]
  7. HEPARIN-FRACTION, SODIUM SALT (HEPARIN-FRACTION, SODIUM SALT) [Concomitant]
  8. COMBIVENT [Concomitant]

REACTIONS (5)
  - CEREBELLAR INFARCTION [None]
  - CONVULSION [None]
  - HYPONATRAEMIA [None]
  - INAPPROPRIATE ANTIDIURETIC HORMONE SECRETION [None]
  - TREMOR [None]
